FAERS Safety Report 6612449-7 (Version None)
Quarter: 2010Q1

REPORT INFORMATION
  Report Type: 
  Country: None (occurrence: None)
  Receive Date: 20100303
  Receipt Date: 20100301
  Transmission Date: 20100710
  Serious: Yes (Life-Threatening, Hospitalization)
  Sender: FDA-Public Use
  Company Number: PHHY2010FR08865

PATIENT
  Sex: Female
  Weight: 59 kg

DRUGS (2)
  1. FEMARA [Suspect]
     Indication: BREAST CANCER
     Dosage: UNK
     Dates: start: 20090618, end: 20091101
  2. DURAGESIC-100 [Concomitant]
     Indication: ARTHRALGIA
     Dosage: 15.5 MICROG/H/3DAYS

REACTIONS (3)
  - ANAEMIA [None]
  - RENAL FAILURE [None]
  - THROMBOTIC MICROANGIOPATHY [None]
